FAERS Safety Report 5625279-X (Version None)
Quarter: 2008Q1

REPORT INFORMATION
  Report Type: 
  Country: None (occurrence: None)
  Receive Date: 20080208
  Receipt Date: 20080129
  Transmission Date: 20080703
  Serious: Yes (Other)
  Sender: FDA-Public Use
  Company Number: GXKR2008AU01262

PATIENT
  Age: 31 Year
  Sex: Female

DRUGS (1)
  1. ASCORBIC ACID [Suspect]
     Dosage: 2 G, QD

REACTIONS (4)
  - HYPEROXALAEMIA [None]
  - OLIGURIA [None]
  - OXALOSIS [None]
  - RENAL FAILURE [None]
